FAERS Safety Report 9078543 (Version 1)
Quarter: 2013Q1

REPORT INFORMATION
  Report Type: Report from Study
  Country: US (occurrence: US)
  Receive Date: 20130130
  Receipt Date: 20130130
  Transmission Date: 20140127
  Serious: No
  Sender: FDA-Public Use
  Company Number: US-ABBOTT-12P-163-0971468-00

PATIENT
  Age: 48 Year
  Sex: Female

DRUGS (8)
  1. HUMIRA 40 MG/0.8 ML PEN [Suspect]
     Indication: PSORIATIC ARTHROPATHY
     Dates: start: 20120725
  2. CELEXA [Concomitant]
     Indication: DEPRESSION
     Dosage: 40MG DAILY
  3. LORATADINE [Concomitant]
     Indication: HYPERSENSITIVITY
     Dosage: 10MG DAILY
  4. IBUPROFEN [Concomitant]
     Indication: PRODUCT USED FOR UNKNOWN INDICATION
  5. ZYRTEC [Concomitant]
     Indication: SEASONAL ALLERGY
  6. REQUIP [Concomitant]
     Indication: RESTLESS LEGS SYNDROME
  7. REQUIP [Concomitant]
  8. OTC OMEPRAZOLE [Concomitant]
     Indication: PRODUCT USED FOR UNKNOWN INDICATION

REACTIONS (5)
  - Restless legs syndrome [Not Recovered/Not Resolved]
  - Nausea [Not Recovered/Not Resolved]
  - Vomiting [Not Recovered/Not Resolved]
  - Gastrooesophageal reflux disease [Not Recovered/Not Resolved]
  - Weight increased [Not Recovered/Not Resolved]
